FAERS Safety Report 9999320 (Version 1)
Quarter: 2014Q1

REPORT INFORMATION
  Report Type: Spontaneous
  Country: US (occurrence: None)
  Receive Date: 20140311
  Receipt Date: 20140311
  Transmission Date: 20141002
  Serious: Yes (Other)
  Sender: FDA-Public Use
  Company Number: None

PATIENT
  Age: 54 Year
  Sex: Female
  Weight: 54.43 kg

DRUGS (2)
  1. ATELVIA 35 MG WARNER CHILCOTT [Suspect]
     Indication: BONE LOSS
     Dosage: 1 PILL WEEKLY
     Route: 048
     Dates: start: 20140113, end: 20140210
  2. ATELVIA 35 MG WARNER CHILCOTT [Suspect]
     Indication: MENOPAUSAL SYMPTOMS
     Dosage: 1 PILL WEEKLY
     Route: 048
     Dates: start: 20140113, end: 20140210

REACTIONS (7)
  - Urticaria [None]
  - Back pain [None]
  - Arthralgia [None]
  - Nausea [None]
  - Headache [None]
  - Constipation [None]
  - Diarrhoea [None]
